FAERS Safety Report 10039971 (Version 3)
Quarter: 2014Q2

REPORT INFORMATION
  Report Type: Spontaneous
  Country: JP (occurrence: JP)
  Receive Date: 20140326
  Receipt Date: 20140411
  Transmission Date: 20141212
  Serious: Yes (Death, Other)
  Sender: FDA-Public Use
  Company Number: JP-JNJFOC-20140313427

PATIENT
  Age: 56 Year
  Sex: Female

DRUGS (9)
  1. XEPLION [Suspect]
     Indication: SCHIZOPHRENIA
     Route: 030
     Dates: start: 20140226, end: 20140226
  2. XEPLION [Suspect]
     Indication: SCHIZOPHRENIA
     Route: 030
     Dates: start: 20140129, end: 20140129
  3. XEPLION [Suspect]
     Indication: SCHIZOPHRENIA
     Route: 030
     Dates: start: 20140101, end: 20140101
  4. XEPLION [Suspect]
     Indication: SCHIZOPHRENIA
     Route: 030
     Dates: start: 20131204, end: 20131204
  5. XEPLION [Suspect]
     Indication: SCHIZOPHRENIA
     Route: 030
     Dates: start: 20131127, end: 20131127
  6. PIPERACILLIN SODIUM [Concomitant]
     Route: 065
  7. PANTOSIN [Concomitant]
     Route: 065
  8. LANSOPRAZOLE [Concomitant]
     Route: 065
  9. PANSPORIN [Concomitant]
     Route: 065

REACTIONS (3)
  - Multi-organ failure [Fatal]
  - Hepatic function abnormal [Unknown]
  - Oedema peripheral [Not Recovered/Not Resolved]
